FAERS Safety Report 10694335 (Version 2)
Quarter: 2015Q1

REPORT INFORMATION
  Report Type: Report from Study
  Country: US (occurrence: US)
  Receive Date: 20150107
  Receipt Date: 20150118
  Transmission Date: 20150721
  Serious: Yes (Hospitalization)
  Sender: FDA-Public Use
  Company Number: US-BRISTOL-MYERS SQUIBB COMPANY-BMS-2014-005534

PATIENT
  Age: 72 Year
  Sex: Female
  Weight: 57 kg

DRUGS (21)
  1. SPIRIVA [Concomitant]
     Active Substance: TIOTROPIUM BROMIDE MONOHYDRATE
  2. XANAX [Concomitant]
     Active Substance: ALPRAZOLAM
  3. LANTUS [Concomitant]
     Active Substance: INSULIN GLARGINE
  4. COLACE [Concomitant]
     Active Substance: DOCUSATE SODIUM
  5. EFFEXOR [Concomitant]
     Active Substance: VENLAFAXINE HYDROCHLORIDE
  6. NEURONTIN [Concomitant]
     Active Substance: GABAPENTIN
  7. ADVAIR HFA [Concomitant]
     Active Substance: FLUTICASONE PROPIONATE\SALMETEROL XINAFOATE
  8. FAMOTIDINE. [Concomitant]
     Active Substance: FAMOTIDINE
  9. LEVAQUIN [Concomitant]
     Active Substance: LEVOFLOXACIN
  10. PROLIA [Concomitant]
     Active Substance: DENOSUMAB
  11. SENNA [Concomitant]
     Active Substance: SENNA LEAF\SENNOSIDES\SENNOSIDES A AND B
  12. ALBUTEROL                          /00139501/ [Concomitant]
     Active Substance: ALBUTEROL
  13. DUONEB [Concomitant]
     Active Substance: ALBUTEROL SULFATE\IPRATROPIUM BROMIDE
  14. MIRALAX [Concomitant]
     Active Substance: POLYETHYLENE GLYCOL 3350
  15. MUPIROCIN. [Concomitant]
     Active Substance: MUPIROCIN
  16. FENTANYL. [Concomitant]
     Active Substance: FENTANYL
  17. OXYCODONE [Concomitant]
     Active Substance: OXYCODONE
  18. OXYGEN. [Concomitant]
     Active Substance: OXYGEN
  19. PARICALCITOL. [Concomitant]
     Active Substance: PARICALCITOL
  20. NIVOLUMAB [Suspect]
     Active Substance: NIVOLUMAB
     Indication: NON-SMALL CELL LUNG CANCER
     Dosage: 3 MG/KG, UNK
     Route: 042
     Dates: start: 20141113
  21. ZOLPIDEM [Concomitant]
     Active Substance: ZOLPIDEM\ZOLPIDEM TARTRATE

REACTIONS (1)
  - Dyspnoea [Recovered/Resolved]

NARRATIVE: CASE EVENT DATE: 20141211
